FAERS Safety Report 9419675 (Version 1)
Quarter: 2013Q3

REPORT INFORMATION
  Report Type: Spontaneous
  Country: AU (occurrence: AU)
  Receive Date: 20130725
  Receipt Date: 20130725
  Transmission Date: 20140515
  Serious: Yes (Other)
  Sender: FDA-Public Use
  Company Number: PHHY2013AU078617

PATIENT
  Age: 72 Year
  Sex: 0

DRUGS (8)
  1. VOLTAREN [Suspect]
     Dosage: UNK UKN, UNK
  2. CEFTAZIDIME [Concomitant]
     Dosage: UNK UKN, UNK
  3. ESOMEPRAZOLE MAGNESIUM [Concomitant]
     Dosage: UNK UKN, UNK
  4. PARACETAMOL [Concomitant]
     Dosage: UNK UKN, UNK
  5. SALBUTAMOL [Concomitant]
     Dosage: UNK UKN, UNK
  6. TIOTROPIUM [Concomitant]
     Dosage: UNK UKN, UNK
  7. TOBRAMYCIN [Concomitant]
     Dosage: UNK UKN, UNK
  8. SERETIDE [Concomitant]
     Dosage: UNK UKN, UNK

REACTIONS (1)
  - Blood creatine increased [Unknown]
